FAERS Safety Report 6019092-1 (Version None)
Quarter: 2008Q4

REPORT INFORMATION
  Report Type: 
  Country: None (occurrence: None)
  Receive Date: 20081224
  Receipt Date: 20081212
  Transmission Date: 20090506
  Serious: Yes (Other)
  Sender: FDA-Public Use
  Company Number: US-PFIZER INC-2008153955

PATIENT
  Age: 39 Year
  Sex: Female
  Weight: 59.1 kg

DRUGS (3)
  1. BLINDED *PLACEBO [Suspect]
     Indication: RENAL CELL CARCINOMA
     Dosage: 12.5 MG, 4X/DAY
     Route: 048
     Dates: start: 20080918
  2. BLINDED *SORAFENIB [Suspect]
     Indication: RENAL CELL CARCINOMA
     Dosage: 12.5 MG, 4X/DAY
     Route: 048
     Dates: start: 20080918
  3. BLINDED SUNITINIB MALATE [Suspect]
     Indication: RENAL CELL CARCINOMA
     Dosage: 12.5 MG, 4X/DAY
     Route: 048
     Dates: start: 20080918

REACTIONS (7)
  - DEHYDRATION [None]
  - HYPERBILIRUBINAEMIA [None]
  - HYPERSENSITIVITY [None]
  - HYPONATRAEMIA [None]
  - MUCOSAL INFLAMMATION [None]
  - RASH [None]
  - SYNCOPE [None]
